FAERS Safety Report 8485398 (Version 4)
Quarter: 2012Q4

REPORT INFORMATION
  Report Type: 
  Country: US (occurrence: US)
  Receive Date: 20120330
  Receipt Date: 20120925
  Transmission Date: 20130627
  Serious: Yes (Hospitalization, Disabling, Other)
  Sender: FDA-Public Use
  Company Number: US-009507513-1203USA03398

PATIENT

DRUGS (9)
  1. FOSAMAX [Suspect]
     Indication: OSTEOPOROSIS
     Route: 048
     Dates: start: 20070302, end: 20090130
  2. FOSAMAX [Suspect]
     Indication: OSTEOPENIA
  3. FOSAMAX [Suspect]
     Indication: OSTEOPOROSIS
     Route: 048
     Dates: start: 20090721, end: 20091021
  4. MK-9278 [Concomitant]
     Dosage: UNK UNK, qd
     Dates: start: 2002
  5. VITAMIN D (UNSPECIFIED) [Concomitant]
     Dosage: 4000 mg, qd
     Dates: start: 2002
  6. MAGNESIUM (UNSPECIFIED) [Concomitant]
     Dosage: 400 mg, qd
     Dates: start: 2002
  7. CALCIUM (UNSPECIFIED) [Concomitant]
     Dosage: 2000 mg, qd
     Dates: start: 2002
  8. PRILOSEC [Concomitant]
     Dates: start: 2002
  9. FOSAMAX D [Suspect]
     Dosage: 70/2800
     Route: 048
     Dates: start: 20070302, end: 200901

REACTIONS (24)
  - Femur fracture [Not Recovered/Not Resolved]
  - Osteoporosis [Not Recovered/Not Resolved]
  - Anaemia [Unknown]
  - Pulmonary congestion [Unknown]
  - Low turnover osteopathy [Not Recovered/Not Resolved]
  - Infection [Not Recovered/Not Resolved]
  - Inflammation [Unknown]
  - Asthenia [Unknown]
  - Pain [Not Recovered/Not Resolved]
  - Cough [Unknown]
  - Vitamin D deficiency [Unknown]
  - Tooth disorder [Unknown]
  - Eye disorder [Unknown]
  - Fall [Unknown]
  - Cardiomegaly [Unknown]
  - Left ventricular hypertrophy [Unknown]
  - Cataract [Unknown]
  - Intervertebral disc degeneration [Not Recovered/Not Resolved]
  - Osteoarthritis [Not Recovered/Not Resolved]
  - Chronic obstructive pulmonary disease [Unknown]
  - Limb injury [Unknown]
  - Oedema peripheral [Not Recovered/Not Resolved]
  - Back pain [Unknown]
  - Arthralgia [Not Recovered/Not Resolved]
